FAERS Safety Report 20855732 (Version 1)
Quarter: 2022Q2

REPORT INFORMATION
  Report Type: Spontaneous
  Country: US (occurrence: US)
  Receive Date: 20220520
  Receipt Date: 20220520
  Transmission Date: 20220721
  Serious: No
  Sender: FDA-Public Use
  Company Number: US-PFIZER INC-202200552483

PATIENT
  Age: 68 Year
  Sex: Female

DRUGS (4)
  1. CYTOMEL [Suspect]
     Active Substance: LIOTHYRONINE SODIUM
     Dosage: 25 UG, 3X/DAY (3 ORAL EVERY DAY)
     Route: 048
  2. LIOTHYRONINE SODIUM [Suspect]
     Active Substance: LIOTHYRONINE SODIUM
     Dosage: 5 UG, DAILY (5 MCG TABLET; PO 1 TAB PO Q AM AND 1/2 TAB PO MIDDAY)
     Route: 048
  3. LIOTHYRONINE SODIUM [Suspect]
     Active Substance: LIOTHYRONINE SODIUM
     Dosage: 2.5 UG, DAILY(ORAL 1 TAB PO Q AM 1/2 TAB PO MIDDAY)
  4. HYDROCORTISONE [Suspect]
     Active Substance: HYDROCORTISONE
     Dosage: 5 MG, 1X/DAY (EVERYDAY)
     Route: 048

REACTIONS (4)
  - Full blood count abnormal [Unknown]
  - Helicobacter test positive [Unknown]
  - Metabolic function test abnormal [Unknown]
  - Neutrophil count abnormal [Unknown]
